FAERS Safety Report 23729988 (Version 2)
Quarter: 2024Q2

REPORT INFORMATION
  Report Type: Other
  Country: US (occurrence: US)
  Receive Date: 20240411
  Receipt Date: 20240507
  Transmission Date: 20240716
  Serious: No
  Sender: FDA-Public Use
  Company Number: US-APOTEX-2024AP004195

PATIENT
  Age: 13 Year
  Sex: Male

DRUGS (1)
  1. LISDEXAMFETAMINE DIMESYLATE [Suspect]
     Active Substance: LISDEXAMFETAMINE DIMESYLATE
     Indication: Product used for unknown indication
     Dosage: UNK
     Route: 065
     Dates: start: 20240129

REACTIONS (9)
  - Mood swings [Unknown]
  - Anger [Unknown]
  - Frustration tolerance decreased [Unknown]
  - Affective disorder [Unknown]
  - Personality change [Unknown]
  - Behaviour disorder [Unknown]
  - Product substitution issue [Unknown]
  - Therapeutic response changed [Unknown]
  - Therapeutic response shortened [Unknown]

NARRATIVE: CASE EVENT DATE: 20240101
